FAERS Safety Report 17950682 (Version 1)
Quarter: 2020Q2

REPORT INFORMATION
  Report Type: Spontaneous
  Country: LV (occurrence: LV)
  Receive Date: 20200626
  Receipt Date: 20200626
  Transmission Date: 20200714
  Serious: Yes (Other)
  Sender: FDA-Public Use
  Company Number: LV-MYLANLABS-2020M1058047

PATIENT
  Age: 76 Year
  Sex: Male

DRUGS (1)
  1. SERKEP [Suspect]
     Active Substance: FLUTICASONE PROPIONATE\SALMETEROL XINAFOATE
     Indication: ASTHMA
     Dosage: UNK
     Route: 055
     Dates: start: 20200511, end: 20200525

REACTIONS (5)
  - Blood creatine phosphokinase increased [Recovering/Resolving]
  - Myalgia [Unknown]
  - Nausea [Recovered/Resolved]
  - Visual impairment [Recovered/Resolved]
  - Dry mouth [Recovered/Resolved]

NARRATIVE: CASE EVENT DATE: 20200514
